FAERS Safety Report 23263406 (Version 1)
Quarter: 2023Q4

REPORT INFORMATION
  Report Type: Spontaneous
  Country: US (occurrence: None)
  Receive Date: 20231204
  Receipt Date: 20231204
  Transmission Date: 20240110
  Serious: No
  Sender: FDA-Public Use
  Company Number: None

PATIENT
  Age: 51 Year
  Sex: Female
  Weight: 67.5 kg

DRUGS (2)
  1. BOTOX [Suspect]
     Active Substance: ONABOTULINUMTOXINA
     Dosage: OTHER FREQUENCY : 6 MONTHS;?
     Dates: start: 20231120, end: 20231120
  2. BOTOX [Concomitant]
     Active Substance: ONABOTULINUMTOXINA
     Dates: start: 20231120, end: 20231120

REACTIONS (3)
  - Injection site pain [None]
  - Injection site pain [None]
  - Headache [None]

NARRATIVE: CASE EVENT DATE: 20231120
